FAERS Safety Report 6969554-5 (Version None)
Quarter: 2010Q3

REPORT INFORMATION
  Report Type: 
  Country: None (occurrence: None)
  Receive Date: 20100907
  Receipt Date: 20100907
  Transmission Date: 20110219
  Serious: Yes (Other)
  Sender: FDA-Public Use
  Company Number: None

PATIENT
  Age: 52 Year
  Sex: Female
  Weight: 54.4316 kg

DRUGS (15)
  1. MUCINEX DM [Suspect]
     Indication: COUGH
     Dates: start: 20100904, end: 20100904
  2. DEXTROMETHORPHAN HYDROBROMIDE [Suspect]
  3. NITROGLYCERIN [Concomitant]
  4. INDERAL [Concomitant]
  5. PREDNISONE [Concomitant]
  6. QVAR 40 [Concomitant]
  7. ALBUTEROL SULFATE AUTOHALER [Concomitant]
  8. NORCO [Concomitant]
  9. NEURONTIN [Concomitant]
  10. OXYCONTIN [Concomitant]
  11. KLONIPAN [Concomitant]
  12. ROBAXIN [Concomitant]
  13. NEXIUM [Concomitant]
  14. TRAZADONE FENTYNAL PATCHES [Concomitant]
  15. METHOTREXATE [Concomitant]

REACTIONS (1)
  - SWOLLEN TONGUE [None]
